FAERS Safety Report 15553365 (Version 2)
Quarter: 2018Q4

REPORT INFORMATION
  Report Type: Spontaneous
  Country: PL (occurrence: PL)
  Receive Date: 20181026
  Receipt Date: 20181101
  Transmission Date: 20190205
  Serious: Yes (Death, Hospitalization, Other)
  Sender: FDA-Public Use
  Company Number: PL-AUROBINDO-AUR-APL-2018-052109

PATIENT
  Age: 20 Year
  Sex: Female

DRUGS (12)
  1. BIPERIDEN [Concomitant]
     Active Substance: BIPERIDEN
     Indication: PRODUCT USED FOR UNKNOWN INDICATION
     Dosage: 6 MILLIGRAM, ONCE A DAY
     Route: 065
  2. AMISULPRIDE [Suspect]
     Active Substance: AMISULPRIDE
     Indication: PRODUCT USED FOR UNKNOWN INDICATION
     Dosage: 50 MILLIGRAM, ONCE A DAY
     Route: 065
  3. D-PENICILLAMINE [Suspect]
     Active Substance: PENICILLAMINE
     Dosage: 1 GRAM, ONCE A DAY
     Route: 065
  4. AMITRIPTYLINE [Concomitant]
     Active Substance: AMITRIPTYLINE
     Indication: PRODUCT USED FOR UNKNOWN INDICATION
     Dosage: 20 MILLIGRAM, ONCE A DAY
     Route: 065
  5. OLANZAPINE. [Suspect]
     Active Substance: OLANZAPINE
     Indication: SCHIZOPHRENIA
     Dosage: 10 MILLIGRAM, DAILY
     Route: 065
  6. VITAMIN B6 [Concomitant]
     Active Substance: PYRIDOXINE HYDROCHLORIDE
     Indication: PRODUCT USED FOR UNKNOWN INDICATION
     Dosage: UNK
     Route: 065
  7. D-PENICILLAMINE [Suspect]
     Active Substance: PENICILLAMINE
     Dosage: PENICILLAMINE WAS REDUCED TO 2 TABLETS, THEN GRADUALLY INCREASED TO 4 TABLETSUNK
     Route: 065
  8. HALOPERIDOL. [Suspect]
     Active Substance: HALOPERIDOL
     Indication: SCHIZOPHRENIA
     Dosage: 6 MILLIGRAM, DAILY
     Route: 065
  9. QUETIAPINE. [Suspect]
     Active Substance: QUETIAPINE
     Indication: PRODUCT USED FOR UNKNOWN INDICATION
     Dosage: 200 MILLIGRAM, DAILY  INITIAL DOSE NOT STATED
     Route: 065
  10. D-PENICILLAMINE [Suspect]
     Active Substance: PENICILLAMINE
     Indication: PRODUCT USED FOR UNKNOWN INDICATION
     Dosage: 250 MILLIGRAM, TWO TIMES A DAY
     Route: 016
  11. D-PENICILLAMINE [Suspect]
     Active Substance: PENICILLAMINE
     Dosage: 250 MILLIGRAM. 0.5 A DAY
     Route: 016
  12. PROPRANOLOL [Concomitant]
     Active Substance: PROPRANOLOL HYDROCHLORIDE
     Indication: PRODUCT USED FOR UNKNOWN INDICATION
     Dosage: 40 MILLIGRAM, ONCE A DAY
     Route: 016

REACTIONS (20)
  - Resting tremor [Fatal]
  - Initial insomnia [Fatal]
  - Salivary hypersecretion [Fatal]
  - Dysphagia [Fatal]
  - Reduced facial expression [Fatal]
  - Musculoskeletal pain [Fatal]
  - Tremor [Fatal]
  - Dystonia [Fatal]
  - Psychomotor skills impaired [Fatal]
  - Aphonia [Fatal]
  - Oromandibular dystonia [Fatal]
  - Flat affect [Fatal]
  - Dysarthria [Fatal]
  - Head titubation [Fatal]
  - Muscle rigidity [Fatal]
  - Intention tremor [Fatal]
  - Hepato-lenticular degeneration [Fatal]
  - Terminal insomnia [Fatal]
  - Gait disturbance [Fatal]
  - Pneumonia [Fatal]
